FAERS Safety Report 6771778-7 (Version None)
Quarter: 2010Q2

REPORT INFORMATION
  Report Type: 
  Country: None (occurrence: None)
  Receive Date: 20100616
  Receipt Date: 20100129
  Transmission Date: 20101027
  Serious: No
  Sender: FDA-Public Use
  Company Number: US-ASTRAZENECA-2010SE04230

PATIENT
  Age: 88 Year
  Sex: Female
  Weight: 57.2 kg

DRUGS (2)
  1. ATACAND [Suspect]
     Indication: HYPERTENSION
     Route: 048
  2. ECHINACEA [Concomitant]

REACTIONS (2)
  - ABNORMAL DREAMS [None]
  - INSOMNIA [None]
